FAERS Safety Report 6810733-5 (Version None)
Quarter: 2010Q2

REPORT INFORMATION
  Report Type: 
  Country: None (occurrence: None)
  Receive Date: 20100630
  Receipt Date: 20080108
  Transmission Date: 20101027
  Serious: Yes (Other)
  Sender: FDA-Public Use
  Company Number: US-PFIZER INC-2004089568

PATIENT
  Age: 52 Year
  Sex: Female
  Weight: 86.2 kg

DRUGS (1)
  1. NICOTROL [Suspect]
     Indication: SMOKING CESSATION THERAPY
     Dosage: 6 CARTRIDGES DAILY
     Route: 055
     Dates: start: 20040701

REACTIONS (2)
  - COUGH [None]
  - DRUG DEPENDENCE [None]
